FAERS Safety Report 9738846 (Version 2)
Quarter: 2013Q4

REPORT INFORMATION
  Report Type: Spontaneous
  Country: US (occurrence: US)
  Receive Date: 20131209
  Receipt Date: 20131209
  Transmission Date: 20140711
  Serious: No
  Sender: FDA-Public Use
  Company Number: US-PFIZER INC-2013316669

PATIENT
  Age: 55 Year
  Sex: Female
  Weight: 56.2 kg

DRUGS (2)
  1. PREMPRO [Suspect]
     Indication: MENOPAUSAL SYMPTOMS
     Dosage: 0.625/2.5MG, 1X/DAY
     Dates: start: 201309, end: 201311
  2. ASPIRIN [Concomitant]
     Dosage: UNK, 1X/DAY

REACTIONS (9)
  - Headache [Recovered/Resolved]
  - Muscle twitching [Recovered/Resolved]
  - Tremor [Recovered/Resolved]
  - Paraesthesia [Recovered/Resolved]
  - Hypoaesthesia [Recovered/Resolved]
  - Speech disorder [Recovered/Resolved]
  - Agitation [Recovered/Resolved]
  - Thinking abnormal [Recovered/Resolved]
  - Incorrect drug dosage form administered [Unknown]
